FAERS Safety Report 23674927 (Version 1)
Quarter: 2024Q1

REPORT INFORMATION
  Report Type: Spontaneous
  Country: US (occurrence: US)
  Receive Date: 20240326
  Receipt Date: 20240326
  Transmission Date: 20240410
  Serious: Yes (Other)
  Sender: FDA-Public Use
  Company Number: US-002147023-NVSC2024US060928

PATIENT
  Age: 25 Year
  Sex: Male

DRUGS (1)
  1. VALSARTAN [Suspect]
     Active Substance: VALSARTAN
     Indication: Hypertension
     Dosage: 160 MG, QD
     Route: 065

REACTIONS (17)
  - Bradycardia [Unknown]
  - Loss of consciousness [Unknown]
  - Mitral valve incompetence [Unknown]
  - Tricuspid valve incompetence [Unknown]
  - Aortic arteriosclerosis [Unknown]
  - Anxiety [Unknown]
  - Blood pressure decreased [Unknown]
  - Visual impairment [Unknown]
  - Chest discomfort [Unknown]
  - Musculoskeletal discomfort [Unknown]
  - Blood pressure systolic increased [Unknown]
  - Ventricular extrasystoles [Unknown]
  - Supraventricular extrasystoles [Unknown]
  - Blood pressure systolic inspiratory decreased [Unknown]
  - Feeling abnormal [Unknown]
  - Psychological abuse [Unknown]
  - Vascular compression [Unknown]
